FAERS Safety Report 8790481 (Version 1)
Quarter: 2012Q4

REPORT INFORMATION
  Report Type: Spontaneous
  Country: US (occurrence: None)
  Receive Date: 20120911
  Receipt Date: 20120911
  Transmission Date: 20130627
  Serious: Yes (Other)
  Sender: FDA-Public Use
  Company Number: None

PATIENT
  Age: 60 Year
  Weight: 86.18 kg

DRUGS (2)
  1. OLANZAPINE [Suspect]
     Indication: OBSESSIVE-COMPULSIVE DISORDER
     Dosage: 1 qhs PO
     Route: 048
     Dates: start: 20111130, end: 20120611
  2. OLANZAPINE [Suspect]
     Dosage: 1 PILL QHS PO
     Route: 048
     Dates: start: 20120612, end: 20120910

REACTIONS (5)
  - Anxiety [None]
  - Obsessive-compulsive disorder [None]
  - Insomnia [None]
  - Condition aggravated [None]
  - Irritability [None]
